FAERS Safety Report 5606744-8 (Version None)
Quarter: 2008Q1

REPORT INFORMATION
  Report Type: 
  Country: None (occurrence: None)
  Receive Date: 20080129
  Receipt Date: 20080123
  Transmission Date: 20080703
  Serious: Yes (Other)
  Sender: FDA-Public Use
  Company Number: CH-PFIZER INC-2003163107CH

PATIENT
  Age: 60 Year
  Sex: Female

DRUGS (2)
  1. CABERGOLINE [Suspect]
     Indication: PARKINSON'S DISEASE
     Dosage: TEXT:4MG-FREQ:DAILY
     Route: 048
     Dates: start: 20000609, end: 20010101
  2. MADOPAR [Concomitant]
     Indication: PARKINSON'S DISEASE
     Dosage: TEXT:100/25 MG-FREQ:TID
     Route: 048

REACTIONS (1)
  - CARDIAC VALVE DISEASE [None]
